FAERS Safety Report 17014765 (Version 1)
Quarter: 2019Q4

REPORT INFORMATION
  Report Type: Spontaneous
  Country: US (occurrence: US)
  Receive Date: 20191111
  Receipt Date: 20191111
  Transmission Date: 20200122
  Serious: No
  Sender: FDA-Public Use
  Company Number: US-BAUSCH-BL-2019-022355

PATIENT
  Age: 72 Year
  Sex: Female
  Weight: 51.76 kg

DRUGS (2)
  1. PROPRANOLOL [Concomitant]
     Active Substance: PROPRANOLOL HYDROCHLORIDE
     Indication: PRODUCT USED FOR UNKNOWN INDICATION
  2. LATANOPROST. [Suspect]
     Active Substance: LATANOPROST
     Indication: GLAUCOMA
     Route: 047
     Dates: start: 2017

REACTIONS (3)
  - Foreign body sensation in eyes [Unknown]
  - Product residue present [Unknown]
  - Cough [Unknown]

NARRATIVE: CASE EVENT DATE: 2018
